FAERS Safety Report 13691569 (Version 1)
Quarter: 2017Q2

REPORT INFORMATION
  Report Type: Spontaneous
  Country: US (occurrence: US)
  Receive Date: 20170626
  Receipt Date: 20170626
  Transmission Date: 20170830
  Serious: Yes (Hospitalization)
  Sender: FDA-Public Use
  Company Number: US-ROCHE-1330492

PATIENT
  Sex: Male

DRUGS (1)
  1. TNKASE [Suspect]
     Active Substance: TENECTEPLASE
     Indication: DEEP VEIN THROMBOSIS
     Route: 042
     Dates: start: 20131115, end: 20131115

REACTIONS (2)
  - Off label use [Unknown]
  - Blood fibrinogen decreased [Unknown]
